FAERS Safety Report 8816343 (Version 1)
Quarter: 2012Q4

REPORT INFORMATION
  Report Type: Spontaneous
  Country: US (occurrence: None)
  Receive Date: 20120928
  Receipt Date: 20120928
  Transmission Date: 20130627
  Serious: Yes (Disabling)
  Sender: FDA-Public Use
  Company Number: None

PATIENT
  Age: 75 Year
  Sex: Female
  Weight: 46.27 kg

DRUGS (2)
  1. FLUOROMETHOLONE [Suspect]
     Indication: WATERING EYES
     Dosage: 1 drop each eye twice a day 2 x day eye

lost taste immed
     Dates: start: 20120804, end: 20120808
  2. FLUOROMETHOLONE [Suspect]
     Indication: INFECTION
     Dosage: 1 drop each eye twice a day 2 x day eye

lost taste immed
     Dates: start: 20120804, end: 20120808

REACTIONS (1)
  - Ageusia [None]
